FAERS Safety Report 7003055-3 (Version None)
Quarter: 2010Q3

REPORT INFORMATION
  Report Type: 
  Country: None (occurrence: None)
  Receive Date: 20100920
  Receipt Date: 20091204
  Transmission Date: 20110219
  Serious: No
  Sender: FDA-Public Use
  Company Number: US-ASTRAZENECA-2009SE30506

PATIENT
  Age: 25 Year
  Sex: Female

DRUGS (10)
  1. SEROQUEL [Suspect]
     Indication: BIPOLAR DISORDER
     Dosage: 25-50 MG
     Route: 048
  2. SEROQUEL [Suspect]
     Route: 048
     Dates: start: 20081201
  3. SEROQUEL [Suspect]
     Route: 048
     Dates: start: 20081201
  4. CELEXA [Concomitant]
  5. KLONOPIN [Concomitant]
  6. PREVACID [Concomitant]
  7. PHENERGAN [Concomitant]
  8. CIPROFLOXACIN [Concomitant]
  9. PHENAZOPYRIDINE HCL TAB [Concomitant]
  10. DITROPAN [Concomitant]

REACTIONS (6)
  - ARTERIAL CATHETERISATION [None]
  - DRUG INEFFECTIVE [None]
  - LOSS OF CONSCIOUSNESS [None]
  - NEPHROLITHIASIS [None]
  - URINARY RETENTION [None]
  - WEIGHT INCREASED [None]
